FAERS Safety Report 7553460-1 (Version None)
Quarter: 2011Q2

REPORT INFORMATION
  Report Type: 
  Country: None (occurrence: None)
  Receive Date: 20110617
  Receipt Date: 20110513
  Transmission Date: 20111010
  Serious: Yes (Hospitalization, Other)
  Sender: FDA-Public Use
  Company Number: US-BAYER-201030325NA

PATIENT
  Age: 29 Year
  Sex: Female
  Weight: 63.492 kg

DRUGS (6)
  1. YAZ [Suspect]
     Indication: PREMENSTRUAL SYNDROME
     Dosage: 1 DF, QD
     Route: 048
     Dates: start: 20070501, end: 20071001
  2. BUPROPION HYDROCHLORIDE [Concomitant]
     Dosage: 300 MG, UNK
  3. SERTRALINE HYDROCHLORIDE [Concomitant]
     Dosage: 100 MG, UNK
  4. WELLBUTRIN [Concomitant]
     Dosage: 300 MG, UNK
  5. LORAZEPAM [Concomitant]
     Indication: ANXIETY
     Dosage: UNK
     Dates: start: 20050101, end: 20090101
  6. ZOLOFT [Concomitant]

REACTIONS (9)
  - ANXIETY [None]
  - MENTAL DISORDER [None]
  - PALPITATIONS [None]
  - DEPRESSION [None]
  - CHEST PAIN [None]
  - DYSPNOEA [None]
  - COSTOCHONDRITIS [None]
  - SINUS TACHYCARDIA [None]
  - PULMONARY EMBOLISM [None]
